FAERS Safety Report 5103224-3 (Version None)
Quarter: 2006Q3

REPORT INFORMATION
  Report Type: 
  Country: None (occurrence: None)
  Receive Date: 20060913
  Receipt Date: 20060801
  Transmission Date: 20061208
  Serious: Yes (Death)
  Sender: FDA-Public Use
  Company Number: PHHO2006IN12222

PATIENT
  Age: 68 Year
  Sex: Male

DRUGS (2)
  1. GLEEVEC [Suspect]
     Indication: CHRONIC MYELOID LEUKAEMIA
     Dosage: 400 MG, QD
     Route: 048
     Dates: start: 20040501
  2. GLEEVEC [Suspect]
     Dosage: 300 MG, QD
     Route: 048

REACTIONS (1)
  - CARDIAC FAILURE [None]
